FAERS Safety Report 16511606 (Version 1)
Quarter: 2019Q3

REPORT INFORMATION
  Report Type: Report from Study
  Country: None (occurrence: CA)
  Receive Date: 20190702
  Receipt Date: 20190702
  Transmission Date: 20191004
  Serious: Yes (Other)
  Sender: FDA-Public Use
  Company Number: CA-ABBVIE-18K-028-2461842-00

PATIENT
  Age: 41 Year
  Sex: Female

DRUGS (1)
  1. HUMIRA [Suspect]
     Active Substance: ADALIMUMAB
     Indication: CROHN^S DISEASE
     Route: 058
     Dates: start: 20160301

REACTIONS (6)
  - Therapeutic product effect incomplete [Not Recovered/Not Resolved]
  - Diarrhoea [Not Recovered/Not Resolved]
  - Beta haemolytic streptococcal infection [Unknown]
  - Hidradenitis [Unknown]
  - Wound infection [Unknown]
  - Staphylococcal infection [Unknown]

NARRATIVE: CASE EVENT DATE: 2019
